FAERS Safety Report 9259239 (Version 1)
Quarter: 2013Q2

REPORT INFORMATION
  Report Type: Spontaneous
  Country: DE (occurrence: DE)
  Receive Date: 20130426
  Receipt Date: 20130426
  Transmission Date: 20140414
  Serious: Yes (Death, Other)
  Sender: FDA-Public Use
  Company Number: DE-B.I. PHARMACEUTICALS,INC./RIDGEFIELD-2013-DE-01194DE

PATIENT
  Age: 57 Year
  Sex: 0

DRUGS (1)
  1. PRADAXA [Suspect]
     Indication: INTRACARDIAC THROMBUS
     Dosage: 300 MG
     Dates: start: 20121101, end: 20121117

REACTIONS (3)
  - Death [Fatal]
  - Pulmonary embolism [Unknown]
  - Off label use [Unknown]
